FAERS Safety Report 25421653 (Version 1)
Quarter: 2025Q2

REPORT INFORMATION
  Report Type: Spontaneous
  Country: US (occurrence: US)
  Receive Date: 20250611
  Receipt Date: 20250611
  Transmission Date: 20250717
  Serious: No
  Sender: LUPIN
  Company Number: US-LUPIN PHARMACEUTICALS INC.-2025-04763

PATIENT
  Age: 46 Year
  Weight: 77.098 kg

DRUGS (2)
  1. ALBUTEROL SULFATE [Suspect]
     Active Substance: ALBUTEROL SULFATE
     Indication: Bronchitis
  2. MUCINEX [Concomitant]
     Active Substance: GUAIFENESIN
     Indication: Lower respiratory tract infection
     Route: 065

REACTIONS (6)
  - Dyspnoea [Unknown]
  - Drug dose omission by device [Unknown]
  - Wrong technique in product usage process [Unknown]
  - Device use error [Unknown]
  - Device breakage [Unknown]
  - Device occlusion [Unknown]
